FAERS Safety Report 5050910-X (Version None)
Quarter: 2006Q3

REPORT INFORMATION
  Report Type: 
  Country: None (occurrence: None)
  Receive Date: 20060710
  Receipt Date: 20060623
  Transmission Date: 20061208
  Serious: Yes (Other)
  Sender: FDA-Public Use
  Company Number: NL-2006-017537

PATIENT
  Age: 10 Year
  Sex: Male

DRUGS (4)
  1. FLUDARA [Suspect]
     Indication: BONE MARROW CONDITIONING REGIMEN
     Dosage: 150 MG, MG/M2
  2. ANTITHYMOCYTE IMMUNOGLOBULIN (ANTITHYMOCYTE IMMUNOGLOBULIN) [Concomitant]
  3. CYCLOPHOSPHAMIDE [Concomitant]
  4. G-CSF (GRANULOCYTE COLONY STIMULATING FACTOR) [Concomitant]

REACTIONS (12)
  - ADENOVIRUS INFECTION [None]
  - BLOOD TRIGLYCERIDES INCREASED [None]
  - COMPLICATIONS OF BONE MARROW TRANSPLANT [None]
  - HEPATOMEGALY [None]
  - HISTIOCYTOSIS HAEMATOPHAGIC [None]
  - HUMAN POLYOMAVIRUS INFECTION [None]
  - PANCYTOPENIA [None]
  - RASH [None]
  - RESPIRATORY SYNCYTIAL VIRUS INFECTION [None]
  - SERUM FERRITIN INCREASED [None]
  - SPLENOMEGALY [None]
  - VIRAL INFECTION [None]
